FAERS Safety Report 7538467-2 (Version None)
Quarter: 2011Q2

REPORT INFORMATION
  Report Type: 
  Country: None (occurrence: None)
  Receive Date: 20110609
  Receipt Date: 20110607
  Transmission Date: 20111010
  Serious: Yes (Death)
  Sender: FDA-Public Use
  Company Number: US-AMGEN-USASP2011018784

PATIENT
  Age: 76 Year
  Sex: Female

DRUGS (2)
  1. NPLATE [Suspect]
     Indication: IDIOPATHIC THROMBOCYTOPENIC PURPURA
     Dosage: 2 A?G/KG, UNK
     Dates: start: 20100122, end: 20100325
  2. NPLATE [Suspect]
     Indication: THROMBOCYTOPENIA

REACTIONS (2)
  - RESPIRATORY FAILURE [None]
  - WALDENSTROM'S MACROGLOBULINAEMIA [None]
